FAERS Safety Report 4476558-3 (Version None)
Quarter: 2004Q4

REPORT INFORMATION
  Report Type: 
  Country: None (occurrence: None)
  Receive Date: 20041013
  Receipt Date: 20040930
  Transmission Date: 20050328
  Serious: Yes (Other)
  Sender: FDA-Public Use
  Company Number: A0499051A

PATIENT
  Age: 6 Month
  Sex: Female

DRUGS (1)
  1. WELLBUTRIN SR [Suspect]
     Indication: DRUG USE FOR UNKNOWN INDICATION
     Dosage: 150 MG/PER DAY/ TRANSMAMMARY
     Route: 063

REACTIONS (6)
  - DRUG EXPOSURE VIA BREAST MILK [None]
  - FEBRILE CONVULSION [None]
  - GRAND MAL CONVULSION [None]
  - POSTICTAL STATE [None]
  - RESTLESSNESS [None]
  - UPPER RESPIRATORY TRACT INFECTION [None]
